FAERS Safety Report 6517358-X (Version None)
Quarter: 2009Q4

REPORT INFORMATION
  Report Type: 
  Country: None (occurrence: None)
  Receive Date: 20091218
  Receipt Date: 20091210
  Transmission Date: 20100525
  Serious: Yes (Hospitalization, Other)
  Sender: FDA-Public Use
  Company Number: 2009SP041030

PATIENT
  Age: 51 Year
  Sex: Male

DRUGS (2)
  1. PEG-INTRON [Suspect]
     Indication: HEPATITIS C
     Dosage: ;SC
     Route: 058
     Dates: start: 20091012, end: 20091130
  2. RIBASPHERE [Suspect]
     Indication: HEPATITIS C
     Dates: start: 20091012, end: 20091130

REACTIONS (6)
  - ASTHENIA [None]
  - BLOOD POTASSIUM INCREASED [None]
  - DEHYDRATION [None]
  - HYPOTENSION [None]
  - MEMORY IMPAIRMENT [None]
  - PHARYNGEAL HAEMORRHAGE [None]
